FAERS Safety Report 15988241 (Version 1)
Quarter: 2019Q1

REPORT INFORMATION
  Report Type: Spontaneous
  Country: CA (occurrence: CA)
  Receive Date: 20190221
  Receipt Date: 20190221
  Transmission Date: 20190418
  Serious: Yes (Other)
  Sender: FDA-Public Use
  Company Number: CA-JNJFOC-20190215581

PATIENT
  Age: 40 Year
  Sex: Male

DRUGS (1)
  1. TYLENOL EXTRA STRENGTH [Suspect]
     Active Substance: ACETAMINOPHEN
     Indication: PRODUCT USED FOR UNKNOWN INDICATION
     Route: 048

REACTIONS (8)
  - Immunoglobulins increased [Recovered/Resolved]
  - Arthralgia [Recovered/Resolved]
  - Pain [Recovered/Resolved]
  - Blood glucose increased [Recovered/Resolved]
  - Rash maculo-papular [Recovered/Resolved]
  - Complement factor C3 increased [Recovered/Resolved]
  - Serum sickness [Recovered/Resolved]
  - Hypophosphataemia [Recovered/Resolved]
